FAERS Safety Report 10192292 (Version 2)
Quarter: 2014Q2

REPORT INFORMATION
  Report Type: Spontaneous
  Country: US (occurrence: US)
  Receive Date: 20140523
  Receipt Date: 20140529
  Transmission Date: 20141212
  Serious: Yes (Disabling, Other)
  Sender: FDA-Public Use
  Company Number: PHEH2014US010471

PATIENT
  Age: 54 Year
  Sex: Female
  Weight: 73.47 kg

DRUGS (7)
  1. GILENYA [Suspect]
     Indication: MULTIPLE SCLEROSIS
     Dosage: 0.5 MG, QD
     Route: 048
     Dates: start: 201106
  2. DETROL LA [Concomitant]
     Indication: MICTURITION URGENCY
     Dosage: 2 MG
     Route: 048
  3. MULTI-VIT [Concomitant]
     Route: 048
  4. TYLENOL PM [Concomitant]
     Route: 048
  5. VIT D [Concomitant]
     Route: 048
  6. BACLOFEN [Concomitant]
     Indication: MUSCLE SPASTICITY
     Dosage: 10 MG, BID
     Route: 048
     Dates: start: 201106
  7. MAG [Concomitant]
     Route: 048

REACTIONS (5)
  - Colon cancer [Recovering/Resolving]
  - Haemorrhage [Unknown]
  - Red blood cell count decreased [Unknown]
  - Haemoglobin decreased [Unknown]
  - Haematocrit decreased [Unknown]
